FAERS Safety Report 11749568 (Version 1)
Quarter: 2015Q4

REPORT INFORMATION
  Report Type: Spontaneous
  Country: HR (occurrence: HR)
  Receive Date: 20151118
  Receipt Date: 20151118
  Transmission Date: 20160304
  Serious: Yes (Hospitalization)
  Sender: FDA-Public Use
  Company Number: HR-ACTAVIS-2015-24913

PATIENT
  Age: 70 Year
  Sex: Female
  Weight: 90 kg

DRUGS (5)
  1. ARNETIN [Concomitant]
     Indication: COLON CANCER
     Dosage: 50 %, SINGLE
     Route: 042
     Dates: start: 20150812, end: 20150812
  2. CALCIUM FOLINATE [Interacting]
     Active Substance: LEUCOVORIN CALCIUM
     Indication: COLON CANCER
     Dosage: 300 MG, SINGLE
     Route: 042
     Dates: start: 20150812, end: 20150812
  3. SINOXAL [Suspect]
     Active Substance: OXALIPLATIN
     Indication: COLON CANCER
     Dosage: 150 MG, SINGLE
     Route: 042
     Dates: start: 20150812, end: 20150812
  4. DEXAMETHASON KRKA                  /00016001/ [Concomitant]
     Indication: PRODUCT USED FOR UNKNOWN INDICATION
     Dosage: 4 %, SINGLE
     Route: 042
     Dates: start: 20150812, end: 20150812
  5. SETRONON [Concomitant]
     Indication: COLON CANCER
     Dosage: 8 %, SINGLE
     Route: 048
     Dates: start: 20150812, end: 20150812

REACTIONS (4)
  - Body temperature increased [Recovered/Resolved]
  - Vomiting [Recovered/Resolved]
  - Drug interaction [Recovered/Resolved]
  - Diarrhoea [Recovered/Resolved]

NARRATIVE: CASE EVENT DATE: 20150812
